FAERS Safety Report 21018482 (Version 1)
Quarter: 2022Q2

REPORT INFORMATION
  Report Type: Spontaneous
  Country: JP (occurrence: JP)
  Receive Date: 20220628
  Receipt Date: 20220628
  Transmission Date: 20220721
  Serious: Yes (Disabling)
  Sender: FDA-Public Use
  Company Number: JP-ALLERGAN-2106786US

PATIENT
  Sex: Female

DRUGS (3)
  1. ALPHAGAN P [Suspect]
     Active Substance: BRIMONIDINE TARTRATE
     Indication: Glaucoma
     Dosage: 2 GTT, QD
     Route: 047
     Dates: start: 201902, end: 202101
  2. TAPROS [Concomitant]
     Indication: Glaucoma
     Dosage: 1 GTT, QD
     Route: 047
     Dates: start: 2014
  3. TIMOLOL [Concomitant]
     Active Substance: TIMOLOL
     Indication: Glaucoma
     Dosage: 2 GTT, QD
     Route: 047
     Dates: start: 2014

REACTIONS (1)
  - Keratitis interstitial [Recovering/Resolving]
